FAERS Safety Report 8014979-2 (Version None)
Quarter: 2011Q4

REPORT INFORMATION
  Report Type: 
  Country: None (occurrence: None)
  Receive Date: 20111230
  Receipt Date: 20111221
  Transmission Date: 20120403
  Serious: Yes (Other)
  Sender: FDA-Public Use
  Company Number: US-BIOGENIDEC-2011BI044447

PATIENT
  Age: 52 Year
  Sex: Female

DRUGS (3)
  1. TYSABRI [Suspect]
     Indication: MULTIPLE SCLEROSIS
     Route: 042
     Dates: start: 20091111, end: 20101021
  2. REBIF [Concomitant]
     Indication: MULTIPLE SCLEROSIS
  3. GILENYA [Concomitant]
     Indication: MULTIPLE SCLEROSIS

REACTIONS (1)
  - CERVIX CARCINOMA [None]
